FAERS Safety Report 17193579 (Version 4)
Quarter: 2020Q1

REPORT INFORMATION
  Report Type: Spontaneous
  Country: JP (occurrence: JP)
  Receive Date: 20191223
  Receipt Date: 20200228
  Transmission Date: 20200409
  Serious: Yes (Hospitalization)
  Sender: FDA-Public Use
  Company Number: JP-ELI_LILLY_AND_COMPANY-JP201912008854AA

PATIENT
  Age: 63 Year
  Sex: Male
  Weight: 75 kg

DRUGS (16)
  1. METOLATE [Concomitant]
     Active Substance: METHOTREXATE
     Dosage: 8 MG
     Route: 048
     Dates: start: 20191111, end: 20191124
  2. ENALAPRIL MALEATE. [Concomitant]
     Active Substance: ENALAPRIL MALEATE
  3. TORASEMIDE [Concomitant]
     Active Substance: TORSEMIDE
     Route: 048
  4. ERYTHROCIN [ERYTHROMYCIN STEARATE] [Concomitant]
     Route: 048
  5. ONBREZ [Concomitant]
     Active Substance: INDACATEROL
     Route: 055
  6. ONETRAM [Concomitant]
     Active Substance: TRAMADOL HYDROCHLORIDE
     Route: 048
  7. OLUMIANT [Suspect]
     Active Substance: BARICITINIB
     Indication: RHEUMATOID ARTHRITIS
     Dosage: 4 MG, DAILY
     Route: 048
     Dates: start: 20181221, end: 20191202
  8. RABEPRAZOLE NA [Concomitant]
     Active Substance: RABEPRAZOLE SODIUM
     Route: 048
  9. CLOPIDOGREL [Concomitant]
     Active Substance: CLOPIDOGREL BISULFATE
     Route: 048
  10. FOLIAMIN [Concomitant]
     Active Substance: FOLIC ACID
     Route: 048
  11. ROSUVASTATIN. [Concomitant]
     Active Substance: ROSUVASTATIN
     Route: 048
  12. METOLATE [Concomitant]
     Active Substance: METHOTREXATE
     Dosage: 12 MG
     Route: 048
     Dates: end: 20191110
  13. METOLATE [Concomitant]
     Active Substance: METHOTREXATE
     Dosage: 6 MG
     Route: 048
     Dates: start: 20191125, end: 20191202
  14. CARBOCISTEINE [Concomitant]
     Active Substance: CARBOCYSTEINE
     Route: 048
  15. CELECOX [Concomitant]
     Active Substance: CELECOXIB
     Route: 048
  16. BAYASPIRIN [Concomitant]
     Active Substance: ASPIRIN
     Route: 048

REACTIONS (3)
  - Interstitial lung disease [Unknown]
  - Small cell lung cancer [Not Recovered/Not Resolved]
  - Metastases to lung [Not Recovered/Not Resolved]

NARRATIVE: CASE EVENT DATE: 20191108
